FAERS Safety Report 5057813-5 (Version None)
Quarter: 2006Q3

REPORT INFORMATION
  Report Type: 
  Country: None (occurrence: None)
  Receive Date: 20060721
  Receipt Date: 20060227
  Transmission Date: 20061208
  Serious: No
  Sender: FDA-Public Use
  Company Number: US-GLAXOSMITHKLINE-A0595345A

PATIENT
  Age: 39 Year
  Sex: Female

DRUGS (5)
  1. AVANDIA [Suspect]
     Dosage: 2MG PER DAY
     Route: 048
  2. METFORMIN [Concomitant]
  3. LASIX [Concomitant]
  4. COUMADIN [Concomitant]
  5. CHOLESTEROL REDUCING AGENT [Concomitant]

REACTIONS (13)
  - ANOREXIA [None]
  - CHEST PAIN [None]
  - FATIGUE [None]
  - FLUID RETENTION [None]
  - HEADACHE [None]
  - HEART RATE INCREASED [None]
  - HYPERSENSITIVITY [None]
  - MENTAL IMPAIRMENT [None]
  - MICTURITION DISORDER [None]
  - NAUSEA [None]
  - PHARYNGEAL OEDEMA [None]
  - SWELLING FACE [None]
  - WEIGHT INCREASED [None]
